FAERS Safety Report 15131325 (Version 1)
Quarter: 2018Q3

REPORT INFORMATION
  Report Type: Spontaneous
  Country: DE (occurrence: DE)
  Receive Date: 20180711
  Receipt Date: 20180711
  Transmission Date: 20181010
  Serious: Yes (Other)
  Sender: FDA-Public Use
  Company Number: DE-MYLANLABS-2018M1049025

PATIENT
  Age: 31 Year
  Sex: Female

DRUGS (1)
  1. BACLOFEN MYLAN [Suspect]
     Active Substance: BACLOFEN
     Indication: PRODUCT USED FOR UNKNOWN INDICATION
     Dosage: 979.9 ?G, QD
     Route: 037
     Dates: start: 20180205

REACTIONS (2)
  - Restlessness [Recovered/Resolved]
  - Device issue [Recovered/Resolved]
